FAERS Safety Report 14617763 (Version 1)
Quarter: 2018Q1

REPORT INFORMATION
  Report Type: Spontaneous
  Country: BR (occurrence: BR)
  Receive Date: 20180309
  Receipt Date: 20180309
  Transmission Date: 20180509
  Serious: Yes (Other)
  Sender: FDA-Public Use
  Company Number: PHHY2018BR037048

PATIENT
  Sex: Female
  Weight: 57 kg

DRUGS (3)
  1. OLCADIL [Suspect]
     Active Substance: CLOXAZOLAM
     Indication: PRODUCT USED FOR UNKNOWN INDICATION
     Route: 065
  2. ALPRAZOLAM. [Suspect]
     Active Substance: ALPRAZOLAM
     Indication: ANXIETY
     Dosage: 1 DF, QD
     Route: 048
  3. ALPRAZOLAM. [Suspect]
     Active Substance: ALPRAZOLAM
     Indication: BLOOD PRESSURE INCREASED

REACTIONS (1)
  - Tachycardia [Recovering/Resolving]
